FAERS Safety Report 6825992-2 (Version None)
Quarter: 2010Q3

REPORT INFORMATION
  Report Type: 
  Country: None (occurrence: None)
  Receive Date: 20100706
  Receipt Date: 20100322
  Transmission Date: 20110219
  Serious: Yes (Other)
  Sender: FDA-Public Use
  Company Number: 2010038948

PATIENT
  Sex: Female
  Weight: 56.7 kg

DRUGS (7)
  1. ZOLOFT [Suspect]
     Indication: DEPRESSION
     Dosage: 200 MG, 1X/DAY
     Dates: start: 20090101
  2. PRISTIQ [Suspect]
     Indication: DEPRESSION
     Dosage: 50 MG, 1X/DAY, ORAL
     Route: 048
     Dates: start: 20100317
  3. CALCIUM (CALCIUM) [Concomitant]
  4. COD LIVER OIL FORTIFIED TAB [Concomitant]
  5. GLUCOSAMINE (GLUCOSAMINE) [Concomitant]
  6. ST. JOHN'S WORT (HYPERICUM PERFORATUM) [Concomitant]
  7. VITAMIN A [Concomitant]

REACTIONS (7)
  - CHILLS [None]
  - CRYING [None]
  - DEPRESSION [None]
  - FEELING ABNORMAL [None]
  - HEADACHE [None]
  - INFLUENZA LIKE ILLNESS [None]
  - NIGHTMARE [None]
